FAERS Safety Report 4424967-0 (Version None)
Quarter: 2004Q3

REPORT INFORMATION
  Report Type: 
  Country: None (occurrence: None)
  Receive Date: 20040811
  Receipt Date: 20040811
  Transmission Date: 20050211
  Serious: Yes (Other)
  Sender: FDA-Public Use
  Company Number: None

PATIENT
  Age: 75 Year
  Sex: Female
  Weight: 104.3273 kg

DRUGS (9)
  1. LANTUS [Suspect]
     Indication: DIABETES MELLITUS
     Dosage: 30 UNITS /DAY AT BEDTIME [OVER 1 YEAR]
  2. LANTUS [Suspect]
     Indication: DIABETES MELLITUS
     Dosage: 30 UNITS/DAY AT BEDTIME [OVER 1 YEAR]
  3. LANTUS [Suspect]
  4. NORVASC [Concomitant]
  5. GLYBURIDE [Concomitant]
  6. FUROSEMIDE [Concomitant]
  7. DICYCLOMINE [Concomitant]
  8. TIMED-RELEASE NIACIN [Concomitant]
  9. ASPIRIN [Concomitant]

REACTIONS (9)
  - ARTHROPOD BITE [None]
  - ASTHENIA [None]
  - BLISTER [None]
  - BLOOD GLUCOSE INCREASED [None]
  - DRUG EFFECT DECREASED [None]
  - FEELING ABNORMAL [None]
  - PHARMACEUTICAL PRODUCT COMPLAINT [None]
  - POLYDIPSIA [None]
  - SKIN ODOUR ABNORMAL [None]
